FAERS Safety Report 10183965 (Version 1)
Quarter: 2014Q2

REPORT INFORMATION
  Report Type: Spontaneous
  Country: US (occurrence: US)
  Receive Date: 20140520
  Receipt Date: 20140520
  Transmission Date: 20141212
  Serious: Yes (Other)
  Sender: FDA-Public Use
  Company Number: US-GLAXOSMITHKLINE-A1073328A

PATIENT
  Age: 68 Year
  Sex: Male

DRUGS (6)
  1. ADVAIR [Suspect]
     Indication: CHRONIC OBSTRUCTIVE PULMONARY DISEASE
     Dosage: 1PUFF TWICE PER DAY
     Route: 055
     Dates: start: 201312
  2. ALBUTEROL [Suspect]
     Indication: PRODUCT USED FOR UNKNOWN INDICATION
     Route: 065
  3. CHEMOTHERAPY [Suspect]
     Indication: LUNG NEOPLASM MALIGNANT
     Route: 065
  4. CHEMOTHERAPY [Suspect]
     Indication: LUNG NEOPLASM MALIGNANT
     Route: 065
  5. KLOR-CON [Concomitant]
  6. FUROSEMIDE [Concomitant]

REACTIONS (4)
  - Lung neoplasm malignant [Unknown]
  - Pain [Unknown]
  - Adverse drug reaction [Unknown]
  - Drug ineffective [Unknown]
